FAERS Safety Report 11242283 (Version 1)
Quarter: 2015Q3

REPORT INFORMATION
  Report Type: Other
  Country: JP (occurrence: JP)
  Receive Date: 20150707
  Receipt Date: 20150707
  Transmission Date: 20151125
  Serious: Yes (Hospitalization)
  Sender: FDA-Public Use
  Company Number: JP-LUPIN PHARMACEUTICALS INC.-2015-01736

PATIENT
  Age: 73 Year
  Sex: Female

DRUGS (4)
  1. PAROXETINE [Suspect]
     Active Substance: PAROXETINE\PAROXETINE HYDROCHLORIDE
     Indication: DEPRESSION
     Dosage: 50MG
     Route: 065
  2. PAROXETINE [Suspect]
     Active Substance: PAROXETINE\PAROXETINE HYDROCHLORIDE
     Dosage: 37.5MG
     Route: 065
  3. ZOLPIDEM [Suspect]
     Active Substance: ZOLPIDEM\ZOLPIDEM TARTRATE
     Indication: DEPRESSION
     Dosage: 10MG
     Route: 065
  4. PAROXETINE [Suspect]
     Active Substance: PAROXETINE\PAROXETINE HYDROCHLORIDE
     Dosage: 50
     Route: 065

REACTIONS (2)
  - Hallucination, auditory [Recovered/Resolved]
  - Parasomnia [Recovering/Resolving]
